FAERS Safety Report 14786126 (Version 1)
Quarter: 2018Q2

REPORT INFORMATION
  Report Type: Report from Study
  Country: None (occurrence: ES)
  Receive Date: 20180420
  Receipt Date: 20180420
  Transmission Date: 20180711
  Serious: Yes (Hospitalization)
  Sender: FDA-Public Use
  Company Number: ES-BAUSCH-BL-2018-010299

PATIENT
  Age: 85 Year
  Sex: Female

DRUGS (5)
  1. NOLOTIL (METAMIZOLE\PROPOXYPHENE) [Interacting]
     Active Substance: METAMIZOLE\PROPOXYPHENE
     Indication: PRODUCT USED FOR UNKNOWN INDICATION
     Dosage: X 10;
     Route: 048
     Dates: start: 20170825, end: 20170825
  2. LORAZEPAM. [Suspect]
     Active Substance: LORAZEPAM
     Indication: SUICIDE ATTEMPT
     Dosage: 1.5 MG X 45
     Route: 048
     Dates: start: 20170825, end: 20170825
  3. STILNOX [Interacting]
     Active Substance: ZOLPIDEM TARTRATE
     Indication: SUICIDE ATTEMPT
     Dosage: 10MG X 15
     Route: 048
     Dates: start: 20170825, end: 20170825
  4. LORMETAZEPAM [Interacting]
     Active Substance: LORMETAZEPAM
     Indication: SUICIDE ATTEMPT
     Dosage: 1MG X 25
     Route: 048
     Dates: start: 20170825, end: 20170825
  5. HEMICRANEAL (ACETAMINOPHEN\BELLADONNA EXTRACT\CAFFEINE\ERGOTAMINE TARTRATE) [Interacting]
     Active Substance: ACETAMINOPHEN\BELLADONNA LEAF\CAFFEINE\ERGOTAMINE TARTRATE
     Indication: SUICIDE ATTEMPT
     Dosage: X 20
     Route: 048
     Dates: start: 20170825, end: 20170825

REACTIONS (4)
  - Hypocoagulable state [Recovered/Resolved]
  - Depressed level of consciousness [Recovered/Resolved]
  - Aspiration bronchial [Recovered/Resolved]
  - Inappropriate antidiuretic hormone secretion [Recovered/Resolved]

NARRATIVE: CASE EVENT DATE: 20170825
